FAERS Safety Report 10201617 (Version 1)
Quarter: 2014Q2

REPORT INFORMATION
  Report Type: Spontaneous
  Country: US (occurrence: US)
  Receive Date: 20140528
  Receipt Date: 20140528
  Transmission Date: 20141212
  Serious: No
  Sender: FDA-Public Use
  Company Number: US-009507513-1405USA000591

PATIENT
  Sex: Female

DRUGS (2)
  1. CLARITIN-D-12 [Suspect]
     Indication: SEASONAL ALLERGY
     Dosage: 5 MG, ONCE
     Route: 048
     Dates: start: 20140419
  2. CLARITIN-D-12 [Suspect]
     Dosage: 5 MG, ONCE
     Route: 048
     Dates: start: 20140420

REACTIONS (1)
  - Overdose [Unknown]
